FAERS Safety Report 11130041 (Version 3)
Quarter: 2015Q3

REPORT INFORMATION
  Report Type: Report from Study
  Country: US (occurrence: US)
  Receive Date: 20150521
  Receipt Date: 20150803
  Transmission Date: 20151125
  Serious: Yes (Other)
  Sender: FDA-Public Use
  Company Number: PHEH2015US009415

PATIENT
  Sex: Female
  Weight: 78 kg

DRUGS (3)
  1. TOBI [Suspect]
     Active Substance: TOBRAMYCIN
     Indication: CHRONIC OBSTRUCTIVE PULMONARY DISEASE
     Dosage: 5 ML, BID
     Route: 055
  2. TOBI [Suspect]
     Active Substance: TOBRAMYCIN
     Indication: LUNG DISORDER
  3. TOBI [Suspect]
     Active Substance: TOBRAMYCIN
     Indication: BRONCHIECTASIS

REACTIONS (24)
  - Chronic obstructive pulmonary disease [Unknown]
  - Impaired fasting glucose [Unknown]
  - Thyroid neoplasm [Unknown]
  - Dyspepsia [Unknown]
  - Osteopenia [Unknown]
  - Gastrooesophageal reflux disease [Unknown]
  - Renal cyst [Unknown]
  - Haemorrhoids [Unknown]
  - Asthma [Unknown]
  - Rhinitis allergic [Unknown]
  - Bronchiectasis [Unknown]
  - Nasal septum deviation [Unknown]
  - Sleep apnoea syndrome [Unknown]
  - Pulmonary mass [Unknown]
  - Product use issue [Unknown]
  - Basal cell carcinoma [Unknown]
  - Anxiety [Unknown]
  - Chronic sinusitis [Unknown]
  - Crohn^s disease [Unknown]
  - Deep vein thrombosis [Unknown]
  - Hypothyroidism [Unknown]
  - Obesity [Unknown]
  - Mycobacterial infection [Unknown]
  - Oedema [Unknown]
